FAERS Safety Report 17457468 (Version 1)
Quarter: 2020Q1

REPORT INFORMATION
  Report Type: Spontaneous
  Country: IT (occurrence: IT)
  Receive Date: 20200225
  Receipt Date: 20200225
  Transmission Date: 20200409
  Serious: Yes (Other)
  Sender: FDA-Public Use
  Company Number: IT-MYLANLABS-2019M1121087

PATIENT
  Age: 17 Year
  Sex: Female
  Weight: 71 kg

DRUGS (1)
  1. LEVOFLOXACIN. [Suspect]
     Active Substance: LEVOFLOXACIN
     Indication: CYSTITIS
     Dosage: 500 MILLIGRAM, QD
     Route: 048
     Dates: start: 20191003, end: 20191003

REACTIONS (3)
  - Dyspnoea [Recovering/Resolving]
  - Face oedema [Recovering/Resolving]
  - Urticaria [Recovering/Resolving]

NARRATIVE: CASE EVENT DATE: 20191003
